FAERS Safety Report 7414464-2 (Version None)
Quarter: 2011Q2

REPORT INFORMATION
  Report Type: 
  Country: None (occurrence: None)
  Receive Date: 20110414
  Receipt Date: 20110406
  Transmission Date: 20111010
  Serious: Yes (Other)
  Sender: FDA-Public Use
  Company Number: US-US-EMD SERONO, INC.-7004525

PATIENT
  Sex: Female
  Weight: 107 kg

DRUGS (3)
  1. TOPAMAX [Concomitant]
     Indication: MIGRAINE
     Dates: start: 20050815
  2. REBIF [Suspect]
     Indication: MULTIPLE SCLEROSIS
     Route: 058
     Dates: start: 20051109, end: 20090623
  3. ULTRAM [Concomitant]
     Indication: PAIN
     Dates: start: 20050815

REACTIONS (8)
  - MUSCLE SPASMS [None]
  - BALANCE DISORDER [None]
  - HOMICIDAL IDEATION [None]
  - STRESS [None]
  - HYPOAESTHESIA FACIAL [None]
  - SLEEP DISORDER [None]
  - DEPRESSION [None]
  - TREMOR [None]
